FAERS Safety Report 13689784 (Version 2)
Quarter: 2017Q3

REPORT INFORMATION
  Report Type: Spontaneous
  Country: JP (occurrence: JP)
  Receive Date: 20170626
  Receipt Date: 20170725
  Transmission Date: 20171127
  Serious: Yes (Hospitalization, Other)
  Sender: FDA-Public Use
  Company Number: JP-SA-2017SA109988

PATIENT
  Age: 66 Year
  Sex: Female

DRUGS (14)
  1. PYRIMETHAMINE [Suspect]
     Active Substance: PYRIMETHAMINE
     Indication: TOXOPLASMOSIS
     Route: 065
     Dates: start: 2015, end: 2015
  2. TACROLIMUS. [Suspect]
     Active Substance: TACROLIMUS
     Indication: PROPHYLAXIS AGAINST GRAFT VERSUS HOST DISEASE
     Route: 065
     Dates: start: 2015
  3. TRIMETHOPRIM/SULFAMETHOXAZOLE [Suspect]
     Active Substance: SULFAMETHOXAZOLE\TRIMETHOPRIM
     Indication: PROPHYLAXIS
     Route: 065
     Dates: start: 2015, end: 2015
  4. PYRIMETHAMINE [Suspect]
     Active Substance: PYRIMETHAMINE
     Indication: TOXOPLASMOSIS
     Route: 065
     Dates: start: 2015, end: 2015
  5. MELPHALAN. [Suspect]
     Active Substance: MELPHALAN
     Indication: BONE MARROW CONDITIONING REGIMEN
     Route: 065
     Dates: start: 2015
  6. FLUDARA [Suspect]
     Active Substance: FLUDARABINE PHOSPHATE
     Indication: BONE MARROW CONDITIONING REGIMEN
     Route: 065
     Dates: start: 2015
  7. HYDROCORTISONE. [Suspect]
     Active Substance: HYDROCORTISONE
     Indication: PRE-ENGRAFTMENT IMMUNE REACTION
     Route: 065
     Dates: start: 2015, end: 2015
  8. PREDNISOLONE. [Suspect]
     Active Substance: PREDNISOLONE
     Indication: PRE-ENGRAFTMENT IMMUNE REACTION
     Route: 065
     Dates: start: 2015, end: 2015
  9. MYCOPHENOLATE MOFETIL. [Suspect]
     Active Substance: MYCOPHENOLATE MOFETIL
     Indication: PROPHYLAXIS AGAINST GRAFT VERSUS HOST DISEASE
     Route: 065
     Dates: start: 2015, end: 2015
  10. MYCOPHENOLATE MOFETIL. [Suspect]
     Active Substance: MYCOPHENOLATE MOFETIL
     Indication: PROPHYLAXIS AGAINST GRAFT VERSUS HOST DISEASE
     Dosage: DOSE TAPERING
     Route: 065
     Dates: start: 2015, end: 2015
  11. PREDNISOLONE. [Suspect]
     Active Substance: PREDNISOLONE
     Indication: PRE-ENGRAFTMENT IMMUNE REACTION
     Dosage: DOSE TAPERING
     Route: 065
     Dates: start: 2015, end: 2015
  12. HYDROCORTISONE. [Suspect]
     Active Substance: HYDROCORTISONE
     Indication: PRE-ENGRAFTMENT IMMUNE REACTION
     Route: 065
     Dates: start: 2015, end: 2015
  13. SULFADIAZINE. [Suspect]
     Active Substance: SULFADIAZINE
     Indication: TOXOPLASMOSIS
     Route: 065
     Dates: start: 2015, end: 2015
  14. PREDNISOLONE. [Suspect]
     Active Substance: PREDNISOLONE
     Indication: PRE-ENGRAFTMENT IMMUNE REACTION
     Route: 065
     Dates: start: 2015, end: 2015

REACTIONS (24)
  - Toxoplasmosis [Recovering/Resolving]
  - Cough [Recovering/Resolving]
  - Lymphopenia [Recovering/Resolving]
  - Red blood cell count decreased [Unknown]
  - Agranulocytosis [Recovered/Resolved]
  - Cough [Recovered/Resolved]
  - Polymerase chain reaction positive [Recovering/Resolving]
  - Thrombocytopenia [Recovered/Resolved]
  - Visual acuity reduced [Recovering/Resolving]
  - Infection reactivation [Recovering/Resolving]
  - Anaemia [Recovering/Resolving]
  - Haematocrit decreased [Unknown]
  - Retinal infiltrates [Recovering/Resolving]
  - Papilloedema [Recovering/Resolving]
  - Cytomegalovirus test positive [Unknown]
  - Pyrexia [Recovered/Resolved]
  - Vision blurred [Recovering/Resolving]
  - Fundoscopy abnormal [Recovering/Resolving]
  - Renal impairment [Unknown]
  - Computerised tomogram thorax abnormal [Recovering/Resolving]
  - Histiocytosis haematophagic [Recovering/Resolving]
  - Central nervous system lesion [Recovering/Resolving]
  - Eye infection toxoplasmal [Recovering/Resolving]
  - Visual impairment [Recovering/Resolving]

NARRATIVE: CASE EVENT DATE: 2015
